FAERS Safety Report 8135103-1 (Version None)
Quarter: 2012Q1

REPORT INFORMATION
  Report Type: 
  Country: None (occurrence: None)
  Receive Date: 20120214
  Receipt Date: 20120206
  Transmission Date: 20120608
  Serious: Yes (Hospitalization, Other)
  Sender: FDA-Public Use
  Company Number: US-BAYER-2012-002558

PATIENT
  Age: 29 Year
  Sex: Female
  Weight: 68.027 kg

DRUGS (3)
  1. YAZ [Suspect]
     Indication: ACNE
     Dosage: UNK
     Dates: start: 20081001, end: 20091101
  2. PROZAC [Concomitant]
     Dosage: 40 MG, UNK
     Route: 048
  3. POTASSIUM [Concomitant]
     Route: 048

REACTIONS (10)
  - BILE DUCT STENT INSERTION [None]
  - BILE DUCT OBSTRUCTION [None]
  - CHOLECYSTITIS CHRONIC [None]
  - BILIARY TRACT DISORDER [None]
  - MUSCLE HAEMORRHAGE [None]
  - CHOLECYSTITIS [None]
  - POST PROCEDURAL BILE LEAK [None]
  - ABDOMINAL PAIN [None]
  - BILIARY COLIC [None]
  - CHOLESTEROSIS [None]
